FAERS Safety Report 6389135-4 (Version None)
Quarter: 2009Q4

REPORT INFORMATION
  Report Type: 
  Country: None (occurrence: None)
  Receive Date: 20091006
  Receipt Date: 20080529
  Transmission Date: 20100525
  Serious: Yes (Hospitalization, Other)
  Sender: FDA-Public Use
  Company Number: US-ASTRAZENECA-2008UW00797

PATIENT
  Age: 16256 Day
  Sex: Male
  Weight: 108.9 kg

DRUGS (24)
  1. SEROQUEL [Suspect]
     Indication: DEPRESSION
     Dosage: 25 MG, 100 MG, 200 MG
     Route: 048
     Dates: start: 19991021, end: 20061109
  2. SEROQUEL [Suspect]
     Indication: SCHIZOPHRENIA, PARANOID TYPE
     Dosage: 25 MG, 100 MG, 200 MG
     Route: 048
     Dates: start: 19991021, end: 20061109
  3. SEROQUEL [Suspect]
     Indication: SLEEP DISORDER
     Dosage: 25 MG, 100 MG, 200 MG
     Route: 048
     Dates: start: 19991021, end: 20061109
  4. SEROQUEL [Suspect]
     Route: 048
     Dates: start: 19991001
  5. SEROQUEL [Suspect]
     Route: 048
     Dates: start: 19991001
  6. SEROQUEL [Suspect]
     Route: 048
     Dates: start: 19991001
  7. ABILIFY [Concomitant]
     Dosage: 15 MG AND 20 MG
     Dates: start: 20030101, end: 20050101
  8. ABILIFY [Concomitant]
     Route: 048
     Dates: start: 20040113
  9. CLOZARIL [Concomitant]
     Dates: start: 19990101
  10. GEODON [Concomitant]
     Dates: start: 20020101
  11. HALDOL [Concomitant]
     Dates: start: 20020101
  12. RISPERDAL [Concomitant]
     Dates: start: 20010101
  13. THORAZINE [Concomitant]
     Dates: start: 20070101
  14. TRILAFON [Concomitant]
  15. ZYPREXA [Concomitant]
     Dosage: 1999, 2007, 2008
  16. ZYPREXA [Concomitant]
     Dosage: 1999, 2007, 2008
  17. CYMBALTA [Concomitant]
     Dates: start: 20040101, end: 20080101
  18. CLONAZEPAM [Concomitant]
     Dates: start: 20040101, end: 20080101
  19. BENZTROPINE MESYLATE [Concomitant]
     Route: 048
     Dates: start: 19991001
  20. HALOPERIDOL [Concomitant]
     Route: 048
     Dates: start: 19991001
  21. AMBIEN [Concomitant]
     Route: 048
     Dates: start: 20021201
  22. PROPOX [Concomitant]
     Route: 048
     Dates: start: 20030901
  23. NEURONTIN [Concomitant]
     Route: 048
     Dates: start: 20040113
  24. TEMAZEPAM [Concomitant]
     Route: 048
     Dates: start: 20040113

REACTIONS (6)
  - ASTHENIA [None]
  - BLOOD PRESSURE ABNORMAL [None]
  - DIABETES MELLITUS [None]
  - GASTROOESOPHAGEAL REFLUX DISEASE [None]
  - NEUROPATHY PERIPHERAL [None]
  - TYPE 2 DIABETES MELLITUS [None]
